FAERS Safety Report 24292852 (Version 1)
Quarter: 2024Q3

REPORT INFORMATION
  Report Type: Spontaneous
  Country: US (occurrence: None)
  Receive Date: 20240906
  Receipt Date: 20240906
  Transmission Date: 20241016
  Serious: No
  Sender: DOMPE FARMACEUTICI
  Company Number: US-FARMAPROD-202310-3153

PATIENT
  Age: 69 Year
  Sex: Female

DRUGS (15)
  1. OXERVATE [Suspect]
     Active Substance: CENEGERMIN-BKBJ
     Indication: Neurotrophic keratopathy
     Route: 047
     Dates: start: 20231021
  2. OXERVATE [Suspect]
     Active Substance: CENEGERMIN-BKBJ
  3. OXERVATE [Suspect]
     Active Substance: CENEGERMIN-BKBJ
  4. OXERVATE [Suspect]
     Active Substance: CENEGERMIN-BKBJ
  5. CALCIUM [Concomitant]
     Active Substance: CALCIUM
     Dosage: 500 (1250)
  6. BIOTIN [Concomitant]
     Active Substance: BIOTIN
  7. VITAMIN B12 [Concomitant]
     Active Substance: CYANOCOBALAMIN
  8. VITAMIN D3 [Concomitant]
     Active Substance: CHOLECALCIFEROL
  9. CYANOCOBALAMIN\DEXPANTHENOL\NIACINAMIDE\PYRIDOXINE HYDROCHLORIDE\RIBOF [Concomitant]
     Active Substance: CYANOCOBALAMIN\DEXPANTHENOL\NIACINAMIDE\PYRIDOXINE HYDROCHLORIDE\RIBOFLAVIN 5^-PHOSPHATE SODIUM\THIA
  10. FISH OIL [Concomitant]
     Active Substance: FISH OIL
  11. MAGNESIUM [Concomitant]
     Active Substance: MAGNESIUM
  12. XIIDRA [Concomitant]
     Active Substance: LIFITEGRAST
  13. SYSTANE ULTRA [Concomitant]
     Active Substance: POLYETHYLENE GLYCOL 400\PROPYLENE GLYCOL
     Dosage: 0.3 %-0.4%
  14. LEVOTHYROXINE SODIUM [Concomitant]
     Active Substance: LEVOTHYROXINE SODIUM
  15. COLLAGEN [Concomitant]
     Active Substance: COLLAGEN
     Dosage: PEPTIDE

REACTIONS (6)
  - Eye pain [Not Recovered/Not Resolved]
  - Eye discharge [Recovered/Resolved]
  - Inappropriate schedule of product administration [Unknown]
  - Dry eye [Recovering/Resolving]
  - Vision blurred [Unknown]
  - Product dose omission issue [Unknown]

NARRATIVE: CASE EVENT DATE: 20231109
